FAERS Safety Report 24279722 (Version 2)
Quarter: 2024Q3

REPORT INFORMATION
  Report Type: Spontaneous
  Country: PT (occurrence: PT)
  Receive Date: 20240904
  Receipt Date: 20240928
  Transmission Date: 20241017
  Serious: Yes (Hospitalization, Other)
  Sender: CELLTRION
  Company Number: PT-Accord-304709

PATIENT

DRUGS (5)
  1. BEVACIZUMAB [Suspect]
     Active Substance: BEVACIZUMAB
     Indication: Product used for unknown indication
     Dosage: CHEMOTHERAPY REGIMEN WITH FOLFOX
  2. BEVACIZUMAB [Suspect]
     Active Substance: BEVACIZUMAB
     Indication: Product used for unknown indication
     Dosage: CHEMOTHERAPY REGIMEN WITH FOLFOX
  3. OXALIPLATIN [Suspect]
     Active Substance: OXALIPLATIN
     Indication: Product used for unknown indication
     Dosage: CHEMOTHERAPY REGIMEN WITH FOLFOX
  4. LEUCOVORIN [Suspect]
     Active Substance: LEUCOVORIN\LEUCOVORIN CALCIUM
     Indication: Product used for unknown indication
     Dosage: CHEMOTHERAPY REGIMEN WITH FOLFOX
  5. FLUOROURACIL [Suspect]
     Active Substance: FLUOROURACIL
     Indication: Product used for unknown indication
     Dosage: CHEMOTHERAPY REGIMEN WITH FOLFOX

REACTIONS (1)
  - Tumour lysis syndrome [Unknown]
